FAERS Safety Report 6834481-0 (Version None)
Quarter: 2010Q3

REPORT INFORMATION
  Report Type: 
  Country: None (occurrence: None)
  Receive Date: 20100712
  Receipt Date: 20070614
  Transmission Date: 20110219
  Serious: No
  Sender: FDA-Public Use
  Company Number: US-PFIZER INC-2007027293

PATIENT
  Sex: Male
  Weight: 96.6 kg

DRUGS (9)
  1. CHANTIX [Suspect]
     Indication: SMOKING CESSATION THERAPY
     Dosage: BID: EVERY DAY
     Route: 048
     Dates: start: 20070221, end: 20070301
  2. CHANTIX [Suspect]
     Indication: DYSPEPSIA
  3. PRILOSEC [Concomitant]
     Indication: GASTRIC ULCER
  4. LIPITOR [Concomitant]
  5. ALTACE [Concomitant]
  6. LOPRESSOR [Concomitant]
  7. ADVAIR DISKUS 100/50 [Concomitant]
  8. ACETYLSALICYLIC ACID [Concomitant]
  9. ALBUTEROL [Concomitant]

REACTIONS (9)
  - CHEST DISCOMFORT [None]
  - DYSPEPSIA [None]
  - ERUCTATION [None]
  - FLATULENCE [None]
  - GASTROOESOPHAGEAL REFLUX DISEASE [None]
  - NAUSEA [None]
  - NERVOUSNESS [None]
  - TREMOR [None]
  - WEIGHT [None]
